FAERS Safety Report 15723482 (Version 2)
Quarter: 2018Q4

REPORT INFORMATION
  Report Type: Spontaneous
  Country: JP (occurrence: JP)
  Receive Date: 20181214
  Receipt Date: 20181217
  Transmission Date: 20190205
  Serious: Yes (Other)
  Sender: FDA-Public Use
  Company Number: JP-SA-2018SA333388

PATIENT
  Age: 78 Year
  Sex: Female

DRUGS (5)
  1. AFLIBERCEPT [Suspect]
     Active Substance: AFLIBERCEPT
     Dosage: 2ND DOSE
     Route: 041
     Dates: start: 201702, end: 201702
  2. AFLIBERCEPT [Suspect]
     Active Substance: AFLIBERCEPT
     Indication: ANTIANGIOGENIC THERAPY
     Dosage: 1ST DOSE
     Route: 041
     Dates: start: 20161222, end: 20161222
  3. AFLIBERCEPT [Suspect]
     Active Substance: AFLIBERCEPT
     Dosage: 3RD DOSE
     Route: 041
  4. AFLIBERCEPT [Suspect]
     Active Substance: AFLIBERCEPT
     Dosage: 5TH DOSE
     Route: 041
     Dates: start: 201709, end: 201709
  5. AFLIBERCEPT [Suspect]
     Active Substance: AFLIBERCEPT
     Dosage: 4TH DOSE
     Route: 041
     Dates: start: 201706, end: 201706

REACTIONS (8)
  - Angle closure glaucoma [Recovering/Resolving]
  - Intraocular pressure increased [Recovered/Resolved]
  - Condition aggravated [Unknown]
  - Macular oedema [Recovered/Resolved]
  - Visual acuity reduced [Not Recovered/Not Resolved]
  - Retinal exudates [Unknown]
  - Condition aggravated [Not Recovered/Not Resolved]
  - Macular oedema [Recovered/Resolved]

NARRATIVE: CASE EVENT DATE: 201701
